FAERS Safety Report 25663123 (Version 1)
Quarter: 2025Q3

REPORT INFORMATION
  Report Type: Spontaneous
  Country: US (occurrence: US)
  Receive Date: 20250811
  Receipt Date: 20250811
  Transmission Date: 20251020
  Serious: Yes (Other)
  Sender: STRIDES
  Company Number: US-STRIDES ARCOLAB LIMITED-2025SP009754

PATIENT
  Age: 73 Year
  Sex: Male
  Weight: 110.22 kg

DRUGS (12)
  1. AMLODIPINE [Suspect]
     Active Substance: AMLODIPINE BESYLATE
     Indication: Hypertension
     Route: 065
  2. AMLODIPINE [Suspect]
     Active Substance: AMLODIPINE BESYLATE
     Route: 065
  3. PREDNISONE [Suspect]
     Active Substance: PREDNISONE
     Indication: Optic ischaemic neuropathy
     Route: 048
  4. OZEMPIC [Suspect]
     Active Substance: SEMAGLUTIDE
     Indication: Obesity
     Route: 065
     Dates: start: 202304
  5. OZEMPIC [Suspect]
     Active Substance: SEMAGLUTIDE
     Route: 065
     Dates: start: 202305
  6. OZEMPIC [Suspect]
     Active Substance: SEMAGLUTIDE
     Route: 065
     Dates: start: 202306, end: 202309
  7. OZEMPIC [Suspect]
     Active Substance: SEMAGLUTIDE
     Route: 065
     Dates: start: 202310
  8. CARVEDILOL [Suspect]
     Active Substance: CARVEDILOL
     Indication: Hypertension
     Route: 065
  9. CARVEDILOL [Suspect]
     Active Substance: CARVEDILOL
     Route: 065
  10. HYDROCHLOROTHIAZIDE [Suspect]
     Active Substance: HYDROCHLOROTHIAZIDE
     Indication: Hypertension
     Route: 065
  11. HYDROCHLOROTHIAZIDE [Suspect]
     Active Substance: HYDROCHLOROTHIAZIDE
     Route: 065
  12. ASPIRIN [Concomitant]
     Active Substance: ASPIRIN
     Indication: Product used for unknown indication
     Route: 065

REACTIONS (2)
  - Orthostatic hypotension [Recovering/Resolving]
  - Drug ineffective for unapproved indication [Unknown]
